FAERS Safety Report 4668260-X (Version None)
Quarter: 2005Q2

REPORT INFORMATION
  Report Type: 
  Country: None (occurrence: None)
  Receive Date: 20050523
  Receipt Date: 20040422
  Transmission Date: 20051028
  Serious: Yes (Other)
  Sender: FDA-Public Use
  Company Number: PHBS2004BE05792

PATIENT
  Age: 73 Year

DRUGS (12)
  1. ENDOXAN [Concomitant]
     Route: 065
     Dates: start: 20030301
  2. DEXAMETHASONE [Concomitant]
     Route: 065
  3. HEPARIN [Concomitant]
     Route: 065
     Dates: start: 20020201
  4. VINCRISTINE [Concomitant]
     Dates: start: 20000101
  5. MELPHALAN [Concomitant]
     Dates: start: 20000101
  6. CYCLOPHOSPHAMIDE [Concomitant]
     Dates: start: 20000101
  7. PREDNISOLONE [Concomitant]
     Dates: start: 20000101
  8. VUMON [Concomitant]
  9. THALIDOMIDE [Concomitant]
     Route: 065
     Dates: start: 20020201
  10. ZOMETA [Suspect]
     Indication: MULTIPLE MYELOMA
     Route: 065
     Dates: start: 20030702
  11. AREDIA [Suspect]
     Dates: start: 19991202
  12. AREDIA [Suspect]
     Route: 065
     Dates: start: 20031205

REACTIONS (12)
  - BONE DISORDER [None]
  - BONE PAIN [None]
  - FISTULA [None]
  - JAW DISORDER [None]
  - MALIGNANT NEOPLASM PROGRESSION [None]
  - ORAL SOFT TISSUE DISORDER [None]
  - OSTEITIS [None]
  - OSTEOMYELITIS [None]
  - OSTEONECROSIS [None]
  - PRIMARY SEQUESTRUM [None]
  - TOOTH DISORDER [None]
  - TOOTH EXTRACTION [None]
